FAERS Safety Report 13342614 (Version 1)
Quarter: 2017Q1

REPORT INFORMATION
  Report Type: Spontaneous
  Country: FR (occurrence: FR)
  Receive Date: 20170316
  Receipt Date: 20170316
  Transmission Date: 20170428
  Serious: Yes (Other)
  Sender: FDA-Public Use
  Company Number: FR-PFIZER INC-2017108070

PATIENT
  Sex: Male

DRUGS (5)
  1. TOVIAZ [Suspect]
     Active Substance: FESOTERODINE FUMARATE
     Dosage: UNK
     Dates: start: 201702
  2. PARACETAMOL [Concomitant]
     Active Substance: ACETAMINOPHEN
  3. ZANIDIP BIOGARAN [Concomitant]
  4. KARDEGIC [Concomitant]
     Active Substance: ASPIRIN LYSINE
  5. PRAVASTATINE BIOGARAN [Concomitant]

REACTIONS (1)
  - Haematochezia [Unknown]

NARRATIVE: CASE EVENT DATE: 20170310
